FAERS Safety Report 9896920 (Version 2)
Quarter: 2014Q1

REPORT INFORMATION
  Report Type: Spontaneous
  Country: TW (occurrence: US)
  Receive Date: 20140214
  Receipt Date: 20140226
  Transmission Date: 20141002
  Serious: Yes (Other)
  Sender: FDA-Public Use
  Company Number: TW-009507513-1402USA005433

PATIENT
  Age: 78 Year
  Sex: Female
  Weight: 52 kg

DRUGS (7)
  1. ERTAPENEM SODIUM [Suspect]
     Indication: CHOLECYSTITIS ACUTE
     Dosage: 500 MG PER DAY
  2. ASPIRIN [Concomitant]
  3. CALCIUM ACETATE [Concomitant]
  4. CALCITRIOL [Concomitant]
  5. FOLIC ACID [Concomitant]
  6. SENNA [Concomitant]
  7. VITAMIN B (UNSPECIFIED) [Concomitant]

REACTIONS (1)
  - Neurotoxicity [Recovered/Resolved]
